FAERS Safety Report 8237947-4 (Version None)
Quarter: 2012Q1

REPORT INFORMATION
  Report Type: 
  Country: None (occurrence: None)
  Receive Date: 20120327
  Receipt Date: 20120321
  Transmission Date: 20120608
  Serious: Yes (Other)
  Sender: FDA-Public Use
  Company Number: AU-JNJFOC-20120310825

PATIENT
  Sex: Male

DRUGS (8)
  1. STELARA [Suspect]
     Route: 058
     Dates: start: 20110725
  2. STELARA [Suspect]
     Route: 058
     Dates: start: 20101107
  3. STELARA [Suspect]
     Route: 058
     Dates: start: 20111017
  4. STELARA [Suspect]
     Route: 058
     Dates: start: 20110419
  5. STELARA [Suspect]
     Route: 058
     Dates: start: 20100717
  6. STELARA [Suspect]
     Route: 058
     Dates: start: 20120109
  7. STELARA [Suspect]
     Indication: PSORIASIS
     Route: 058
     Dates: start: 20110124
  8. STELARA [Suspect]
     Route: 058
     Dates: start: 20100814

REACTIONS (1)
  - LOCALISED INFECTION [None]
